FAERS Safety Report 10914101 (Version 1)
Quarter: 2015Q1

REPORT INFORMATION
  Report Type: Spontaneous
  Country: US (occurrence: US)
  Receive Date: 20150313
  Receipt Date: 20150313
  Transmission Date: 20150721
  Serious: Yes (Life-Threatening, Hospitalization, Other)
  Sender: FDA-Public Use
  Company Number: US-PFIZER INC-2015088312

PATIENT
  Age: 33 Year
  Sex: Male
  Weight: 49 kg

DRUGS (4)
  1. DILANTIN [Suspect]
     Active Substance: PHENYTOIN
     Indication: SEIZURE
     Dosage: TWO CAPSULES 30MG MORNING AND THREE IN THE EVENING.
  2. KEPPRA [Concomitant]
     Active Substance: LEVETIRACETAM
     Indication: SEIZURE
     Dosage: 1500 MG, 2X/DAY
     Route: 048
  3. KLONOPIN [Concomitant]
     Active Substance: CLONAZEPAM
     Indication: SEIZURE
     Dosage: 1 MG, 3X/DAY
     Route: 048
  4. DILANTIN [Suspect]
     Active Substance: PHENYTOIN
     Dosage: 100 MG, 3X/DAY
     Route: 048
     Dates: start: 201410

REACTIONS (16)
  - Hypernatraemia [Unknown]
  - Accidental overdose [Recovering/Resolving]
  - Dysphagia [Unknown]
  - Pyrexia [Unknown]
  - Eye movement disorder [Recovered/Resolved]
  - Drug ineffective [Unknown]
  - Endocarditis [Unknown]
  - Lethargy [Unknown]
  - Abnormal loss of weight [Unknown]
  - Toxicity to various agents [Unknown]
  - Oxygen saturation abnormal [Unknown]
  - Acute respiratory failure [Unknown]
  - Vomiting [Recovered/Resolved]
  - Drug dispensing error [Unknown]
  - Pneumonia aspiration [Unknown]
  - Agitation [Unknown]

NARRATIVE: CASE EVENT DATE: 201410
